APPROVED DRUG PRODUCT: ATORVASTATIN CALCIUM
Active Ingredient: ATORVASTATIN CALCIUM
Strength: EQ 40MG BASE
Dosage Form/Route: TABLET;ORAL
Application: A076477 | Product #003
Applicant: SUN PHARMACEUTICAL INDUSTRIES LTD
Approved: Nov 30, 2011 | RLD: No | RS: No | Type: DISCN